FAERS Safety Report 8788311 (Version 1)
Quarter: 2012Q4

REPORT INFORMATION
  Report Type: Report from Study
  Country: US (occurrence: US)
  Receive Date: 20120914
  Receipt Date: 20120914
  Transmission Date: 20130627
  Serious: No
  Sender: FDA-Public Use
  Company Number: US-VERTEX PHARMACEUTICAL INC.-AE-2012-009844

PATIENT
  Age: 56 Year
  Sex: Female
  Weight: 75.46 kg

DRUGS (6)
  1. INCIVEK [Suspect]
     Indication: HEPATITIS C
     Route: 048
  2. PEGASYS [Concomitant]
  3. RIBAPAK [Concomitant]
  4. PROZAC CAP [Concomitant]
  5. VITAMIN D CAP [Concomitant]
  6. CALCIUM [Concomitant]

REACTIONS (3)
  - Fatigue [Unknown]
  - Asthenia [Unknown]
  - Haemoglobin decreased [Unknown]
